FAERS Safety Report 6425916-6 (Version None)
Quarter: 2009Q4

REPORT INFORMATION
  Report Type: 
  Country: None (occurrence: None)
  Receive Date: 20091103
  Receipt Date: 20091103
  Transmission Date: 20100525
  Serious: No
  Sender: FDA-Public Use
  Company Number: None

PATIENT
  Age: 62 Year
  Sex: Male

DRUGS (2)
  1. LISINOPRIL [Suspect]
     Indication: HYPERTENSION
     Dosage: 5 MG EVERY DAY PO
     Route: 048
     Dates: start: 20081216, end: 20090114
  2. LISINOPRIL [Suspect]
     Indication: PAIN
     Dosage: 5 MG EVERY DAY PO
     Route: 048
     Dates: start: 20081216, end: 20090114

REACTIONS (1)
  - ANGIOEDEMA [None]
